FAERS Safety Report 8409026 (Version 6)
Quarter: 2014Q3

REPORT INFORMATION
  Report Type: Spontaneous
  Country: GB (occurrence: GB)
  Receive Date: 20120216
  Receipt Date: 20140819
  Transmission Date: 20150326
  Serious: Yes (Death, Other)
  Sender: FDA-Public Use
  Company Number: PHFR2012GB001067

PATIENT
  Age: 36 Year
  Sex: Male

DRUGS (24)
  1. ARIPIPRAZOLE [Suspect]
     Active Substance: ARIPIPRAZOLE
     Indication: SCHIZOPHRENIA
     Dosage: 5 MG (DAILY)
     Route: 048
  2. WARFARIN [Concomitant]
     Active Substance: WARFARIN
     Dosage: UNK UKN, UNK
     Dates: end: 20120108
  3. TAZOCIN [Concomitant]
     Active Substance: PIPERACILLIN SODIUM\TAZOBACTAM SODIUM
     Dosage: UNK
  4. MEROPENEM. [Concomitant]
     Active Substance: MEROPENEM
     Dosage: 1 G, BID
  5. ACTRAPID INSULIN [Concomitant]
     Dosage: UNK
  6. AMBISOME [Concomitant]
     Active Substance: AMPHOTERICIN B
     Dosage: UNK
  7. ERYTHROMYCIN. [Concomitant]
     Active Substance: ERYTHROMYCIN
     Dosage: UNK
     Route: 042
  8. SIMVASTATIN. [Concomitant]
     Active Substance: SIMVASTATIN
     Dosage: 40 MG (DAILY)
  9. VANCOMYCIN [Concomitant]
     Active Substance: VANCOMYCIN
     Dosage: UNK
  10. PHOSPHATE SANDOZ [Concomitant]
     Dosage: UNK
  11. SANDO K [Concomitant]
     Dosage: UNK
  12. HYDROCORTISONE. [Concomitant]
     Active Substance: HYDROCORTISONE
     Dosage: 50 MG, BID
     Route: 042
  13. MAGNESIUM SULFATE [Concomitant]
     Active Substance: MAGNESIUM SULFATE
     Dosage: UNK
  14. ZOCOR [Suspect]
     Active Substance: SIMVASTATIN
     Dosage: UNK UKN, UNK
     Route: 048
  15. CLONAZEPAM. [Concomitant]
     Active Substance: CLONAZEPAM
     Dosage: 2 MG (DAILY)
     Dates: end: 20120108
  16. CLOZAPINE. [Suspect]
     Active Substance: CLOZAPINE
     Indication: SCHIZOPHRENIA
     Dosage: UNK
     Dates: start: 20060518, end: 20070509
  17. OMEPRAZOLE. [Concomitant]
     Active Substance: OMEPRAZOLE
     Dosage: UNK UKN, UNK
     Dates: end: 20120124
  18. METOCLOPRAMIDE. [Concomitant]
     Active Substance: METOCLOPRAMIDE
     Dosage: 10 MG, TID
  19. GENTAMYCIN [Concomitant]
     Active Substance: GENTAMICIN
     Dosage: UNK
  20. ENOXAPARIN [Concomitant]
     Active Substance: ENOXAPARIN
     Dosage: UNK
  21. CLOZAPINE. [Suspect]
     Active Substance: CLOZAPINE
     Dosage: 450 MG (DAILY)
     Route: 048
     Dates: end: 20120109
  22. FOLIC ACID. [Concomitant]
     Active Substance: FOLIC ACID
     Dosage: UNK UKN, UNK
  23. VALPROATE SODIUM. [Concomitant]
     Active Substance: VALPROATE SODIUM
     Dosage: 1.2 MG (DAILY)
  24. EPOPROSTENOL [Concomitant]
     Active Substance: EPOPROSTENOL
     Dosage: UNK

REACTIONS (25)
  - Neuroleptic malignant syndrome [Fatal]
  - Multi-organ failure [Not Recovered/Not Resolved]
  - Hyperosmolar state [Unknown]
  - Obesity [Unknown]
  - Large intestine perforation [Fatal]
  - Cerebral arteriosclerosis [Not Recovered/Not Resolved]
  - Renal impairment [Unknown]
  - Alanine aminotransferase increased [Unknown]
  - Generalised oedema [Not Recovered/Not Resolved]
  - Diabetes mellitus [Unknown]
  - Otitis externa [Not Recovered/Not Resolved]
  - Pulmonary oedema [Not Recovered/Not Resolved]
  - Haemoglobin decreased [Unknown]
  - Hepatic function abnormal [Unknown]
  - Peritonitis [Fatal]
  - Sepsis [Fatal]
  - Liver injury [Not Recovered/Not Resolved]
  - Arteriosclerosis [Not Recovered/Not Resolved]
  - Malaise [Unknown]
  - Blood creatine phosphokinase increased [Fatal]
  - Renal disorder [Not Recovered/Not Resolved]
  - Hepatomegaly [Not Recovered/Not Resolved]
  - Aspartate aminotransferase increased [Unknown]
  - Circulatory collapse [Unknown]
  - Splenomegaly [Not Recovered/Not Resolved]

NARRATIVE: CASE EVENT DATE: 20120109
